FAERS Safety Report 20700806 (Version 1)
Quarter: 2022Q2

REPORT INFORMATION
  Report Type: Spontaneous
  Country: US (occurrence: US)
  Receive Date: 20220412
  Receipt Date: 20220412
  Transmission Date: 20220721
  Serious: No
  Sender: FDA-Public Use
  Company Number: US-PFIZER INC-2021669661

PATIENT
  Age: 67 Year
  Sex: Male
  Weight: 83.9 kg

DRUGS (7)
  1. GABAPENTIN [Suspect]
     Active Substance: GABAPENTIN
     Dosage: UNK
  2. SILDENAFIL CITRATE [Suspect]
     Active Substance: SILDENAFIL CITRATE
     Dosage: UNK
  3. TYVASO [Suspect]
     Active Substance: TREPROSTINIL
     Indication: Pulmonary arterial hypertension
     Dosage: 0.6 MG/ML
     Route: 055
     Dates: start: 20210506
  4. TYVASO [Suspect]
     Active Substance: TREPROSTINIL
     Dosage: 18-54 UG, 4X/DAY (3-9 BREATHS)
     Route: 055
     Dates: start: 202105
  5. TYVASO [Suspect]
     Active Substance: TREPROSTINIL
     Dosage: 18 UG (3 BREATHS)
     Route: 055
     Dates: start: 202105, end: 202105
  6. TYVASO [Suspect]
     Active Substance: TREPROSTINIL
     Dosage: 24 UG (4 BREATHS)
     Route: 055
     Dates: start: 202105
  7. ESBRIET [Concomitant]
     Active Substance: PIRFENIDONE
     Dosage: UNK

REACTIONS (5)
  - Abdominal discomfort [Unknown]
  - Nausea [Not Recovered/Not Resolved]
  - Decreased appetite [Unknown]
  - Dyspnoea [Unknown]
  - Gastric disorder [Unknown]

NARRATIVE: CASE EVENT DATE: 20210501
